FAERS Safety Report 13115464 (Version 2)
Quarter: 2017Q1

REPORT INFORMATION
  Report Type: Report from Study
  Country: US (occurrence: US)
  Receive Date: 20170113
  Receipt Date: 20170118
  Transmission Date: 20170428
  Serious: Yes (Hospitalization)
  Sender: FDA-Public Use
  Company Number: US-BIOGEN-2017BI00341989

PATIENT
  Age: 55 Year
  Sex: Female

DRUGS (2)
  1. ZINBRYTA [Suspect]
     Active Substance: DACLIZUMAB
     Indication: MULTIPLE SCLEROSIS
     Route: 065
     Dates: start: 20160821
  2. ZINBRYTA [Suspect]
     Active Substance: DACLIZUMAB
     Route: 058
     Dates: start: 201608

REACTIONS (4)
  - Dyspnoea [Unknown]
  - Upper respiratory tract infection [Not Recovered/Not Resolved]
  - Bronchitis [Not Recovered/Not Resolved]
  - Pneumonia [Not Recovered/Not Resolved]

NARRATIVE: CASE EVENT DATE: 20170101
